FAERS Safety Report 10041346 (Version 1)
Quarter: 2014Q1

REPORT INFORMATION
  Report Type: Report from Study
  Country: TH (occurrence: TH)
  Receive Date: 20140327
  Receipt Date: 20140327
  Transmission Date: 20141002
  Serious: Yes (Death, Hospitalization)
  Sender: FDA-Public Use
  Company Number: PHHY2014TH036435

PATIENT
  Age: 81 Year
  Sex: Female

DRUGS (1)
  1. ACLASTA [Suspect]
     Indication: OSTEOPOROSIS
     Dosage: UNK
     Route: 042
     Dates: start: 201401

REACTIONS (5)
  - Back pain [Fatal]
  - Eating disorder [Fatal]
  - Peptic ulcer perforation [Fatal]
  - Haematochezia [Fatal]
  - Sinusitis [Fatal]
